FAERS Safety Report 9492308 (Version 1)
Quarter: 2013Q3

REPORT INFORMATION
  Report Type: Spontaneous
  Country: US (occurrence: US)
  Receive Date: 20130830
  Receipt Date: 20130830
  Transmission Date: 20140515
  Serious: Yes (Other)
  Sender: FDA-Public Use
  Company Number: PHHY2013US092220

PATIENT
  Age: 84 Year
  Sex: Female

DRUGS (5)
  1. CARBIDOPA, LEVODOPA [Suspect]
     Indication: PARKINSON^S DISEASE
     Dosage: 0.5 DF, UNK
  2. CARBIDOPA, LEVODOPA [Suspect]
     Dosage: 0.25 DF, UNK
  3. CARBIDOPA, LEVODOPA [Suspect]
     Dosage: 1 DF, UNK
  4. CARBIDOPA, LEVODOPA [Suspect]
     Dosage: 1.5 DF, UNK
  5. NORTRIPTYLINE [Concomitant]

REACTIONS (4)
  - Migraine [Unknown]
  - Fatigue [Unknown]
  - Nausea [Unknown]
  - Dizziness [Unknown]
